FAERS Safety Report 25133714 (Version 1)
Quarter: 2025Q1

REPORT INFORMATION
  Report Type: Spontaneous
  Country: US (occurrence: US)
  Receive Date: 20250328
  Receipt Date: 20250328
  Transmission Date: 20250409
  Serious: No
  Sender: RECORDATI
  Company Number: US-RECORDATI RARE DISEASE INC.-2024009783

PATIENT

DRUGS (17)
  1. CYSTADANE [Suspect]
     Active Substance: BETAINE
     Indication: Methylenetetrahydrofolate reductase deficiency
     Dosage: 3 GRAM (3 SCOOPS), TID
     Route: 048
     Dates: start: 20211118, end: 20240909
  2. CYSTADANE [Suspect]
     Active Substance: BETAINE
     Indication: Homocystinuria
     Dosage: 3 GRAM, BID
     Route: 048
     Dates: start: 20240910, end: 202411
  3. CYSTADANE [Suspect]
     Active Substance: BETAINE
     Route: 048
  4. LYRICA [Concomitant]
     Active Substance: PREGABALIN
     Indication: Product used for unknown indication
     Dosage: 100 MILLIGRAM, BID (TABLET)
     Route: 048
     Dates: start: 20210101
  5. METFORMIN HYDROCHLORIDE [Concomitant]
     Active Substance: METFORMIN HYDROCHLORIDE
     Indication: Product used for unknown indication
     Dosage: 1000 MILLIGRAM, BID (500 MG TABLET)
     Route: 048
     Dates: start: 20210101
  6. METHADONE HYDROCHLORIDE [Concomitant]
     Active Substance: METHADONE HYDROCHLORIDE
     Indication: Product used for unknown indication
     Dosage: 10 MILLIGRAM, BID (TABLET)
     Route: 048
     Dates: start: 20210101
  7. JANUVIA [Concomitant]
     Active Substance: SITAGLIPTIN PHOSPHATE
     Indication: Product used for unknown indication
     Dosage: 25 MILLIGRAM, QD (TABLET))
     Route: 048
     Dates: start: 20210101
  8. INSULIN LISPRO [Concomitant]
     Active Substance: INSULIN LISPRO
     Indication: Product used for unknown indication
     Route: 058
     Dates: start: 20210101
  9. IRON [Concomitant]
     Active Substance: IRON
     Indication: Product used for unknown indication
     Dosage: 18 MILLIGRAM, QD (EXTENDED RELEASE TABLET)
     Route: 048
     Dates: start: 20211207
  10. PRASTERONE [Concomitant]
     Active Substance: PRASTERONE
     Indication: Product used for unknown indication
     Dosage: 100 MILLIGRAM, QD (TABLET)
     Route: 048
     Dates: start: 20211207
  11. COENZYME Q10 [Concomitant]
     Active Substance: DIETARY SUPPLEMENT\UBIDECARENONE
     Indication: Product used for unknown indication
     Dosage: 100 MILLIGRAM, QD (CAPSULE)
     Route: 048
     Dates: start: 20211207
  12. MAGNESIUM [Concomitant]
     Active Substance: MAGNESIUM
     Indication: Product used for unknown indication
     Dosage: 500 MILLIGRAM, BID (TABLET)
     Route: 048
     Dates: start: 20211207
  13. PREGNENOLONE [Concomitant]
     Active Substance: PREGNENOLONE
     Indication: Product used for unknown indication
     Dosage: 50 MILLIGRAM, QD (TABLET)
     Route: 048
     Dates: start: 20211207
  14. CALCITRIOL [Concomitant]
     Active Substance: CALCITRIOL
     Indication: Product used for unknown indication
     Dosage: 0.25 MICROGRAM, QOD (CAPSULE)
     Route: 048
     Dates: start: 20220123
  15. LEVOTHYROXINE SODIUM [Concomitant]
     Active Substance: LEVOTHYROXINE SODIUM
     Indication: Product used for unknown indication
     Dosage: 187.5 MICROGRAM, QD (TABLET)
     Route: 048
     Dates: start: 20231201, end: 20241118
  16. LIOTHYRONINE SODIUM [Concomitant]
     Active Substance: LIOTHYRONINE SODIUM
     Indication: Product used for unknown indication
     Dosage: 20 MICROGRAM, QD (TABLET 5 MG)
     Route: 048
     Dates: start: 20231201
  17. ELIQUIS [Concomitant]
     Active Substance: APIXABAN
     Indication: Product used for unknown indication
     Dosage: 5 MILLIGRAM, BID
     Route: 048
     Dates: start: 20240321

REACTIONS (4)
  - Duodenal ulcer [Not Recovered/Not Resolved]
  - Wound [Not Recovered/Not Resolved]
  - Blood homocysteine increased [Not Recovered/Not Resolved]
  - Intentional product misuse [Recovered/Resolved]

NARRATIVE: CASE EVENT DATE: 20241101
